FAERS Safety Report 9164509 (Version 2)
Quarter: 2013Q3

REPORT INFORMATION
  Report Type: Spontaneous
  Country: DK (occurrence: DK)
  Receive Date: 20130315
  Receipt Date: 20130705
  Transmission Date: 20140515
  Serious: Yes (Hospitalization)
  Sender: FDA-Public Use
  Company Number: PHHY2013DK023945

PATIENT
  Age: 65 Year
  Sex: Female

DRUGS (5)
  1. ZOMETA [Suspect]
     Indication: BREAST CANCER METASTATIC
     Dosage: 4 MG ONCE EVERY 4 WEEKS
     Route: 042
     Dates: start: 20111115, end: 20120915
  2. SELOZOK [Concomitant]
     Dosage: UNK UKN, UNK
  3. LETROZOL ACCORD [Concomitant]
     Dosage: UNK UKN, UNK
  4. TRADOLAN [Concomitant]
     Dosage: UNK UKN, UNK
  5. ZOLOFT [Concomitant]
     Dosage: UNK UKN, UNK

REACTIONS (3)
  - Osteonecrosis of jaw [Recovered/Resolved]
  - Exposed bone in jaw [Unknown]
  - Oral cavity fistula [Unknown]
